FAERS Safety Report 5210232-0 (Version None)
Quarter: 2006Q4

REPORT INFORMATION
  Report Type: 
  Country: None (occurrence: None)
  Receive Date: 20061130
  Receipt Date: 20060919
  Transmission Date: 20070319
  Serious: No
  Sender: FDA-Public Use
  Company Number: 06H-163-0310396-00

PATIENT
  Age: 67 Year
  Sex: Female
  Weight: 63.05 kg

DRUGS (1)
  1. PROPOFOL [Suspect]
     Indication: SEDATION
     Dates: start: 20060807, end: 20060807

REACTIONS (1)
  - ANGIONEUROTIC OEDEMA [None]
